FAERS Safety Report 7005544-4 (Version None)
Quarter: 2010Q3

REPORT INFORMATION
  Report Type: 
  Country: None (occurrence: None)
  Receive Date: 20100921
  Receipt Date: 20100908
  Transmission Date: 20110219
  Serious: Yes (Other)
  Sender: FDA-Public Use
  Company Number: CO-GILEAD-E2B_00000853

PATIENT
  Sex: Female
  Weight: 62 kg

DRUGS (1)
  1. AMBRISENTAN [Suspect]
     Indication: PULMONARY ARTERIAL HYPERTENSION
     Dosage: 5MG PER DAY
     Route: 048
     Dates: start: 20091101, end: 20100501

REACTIONS (1)
  - DRUG EXPOSURE DURING PREGNANCY [None]
